FAERS Safety Report 7966548-8 (Version None)
Quarter: 2011Q4

REPORT INFORMATION
  Report Type: 
  Country: None (occurrence: None)
  Receive Date: 20111208
  Receipt Date: 20111130
  Transmission Date: 20120403
  Serious: Yes (Hospitalization)
  Sender: FDA-Public Use
  Company Number: US-ASTRAZENECA-2011SE73104

PATIENT
  Sex: Female

DRUGS (3)
  1. XANAX [Suspect]
     Route: 065
  2. MORTAB [Concomitant]
  3. SEROQUEL XR [Suspect]
     Indication: SLEEP DISORDER
     Route: 048

REACTIONS (10)
  - RESTLESSNESS [None]
  - OFF LABEL USE [None]
  - ANXIETY DISORDER [None]
  - NAUSEA [None]
  - CONVULSION [None]
  - FEELING ABNORMAL [None]
  - VOMITING [None]
  - FALL [None]
  - LOGORRHOEA [None]
  - NERVOUSNESS [None]
